FAERS Safety Report 22357065 (Version 1)
Quarter: 2023Q2

REPORT INFORMATION
  Report Type: Spontaneous
  Country: CN (occurrence: CN)
  Receive Date: 20230523
  Receipt Date: 20230523
  Transmission Date: 20230722
  Serious: Yes (Death, Other)
  Sender: FDA-Public Use
  Company Number: CN-STRIDES ARCOLAB LIMITED-2023SP007376

PATIENT
  Age: 37 Year
  Sex: Female

DRUGS (13)
  1. PREDNISOLONE [Suspect]
     Active Substance: PREDNISOLONE
     Indication: T-cell type acute leukaemia
     Dosage: UNK (RECEIVED CIVP REGIMEN)
     Route: 065
  2. CYCLOPHOSPHAMIDE [Suspect]
     Active Substance: CYCLOPHOSPHAMIDE
     Indication: T-cell type acute leukaemia
     Dosage: UNK (RECEIVED CIVP REGIMEN)
     Route: 065
  3. IDARUBICIN [Suspect]
     Active Substance: IDARUBICIN
     Indication: T-cell type acute leukaemia
     Dosage: UNK (RECEIVED CIVP REGIMEN)
     Route: 065
  4. VINCRISTINE [Suspect]
     Active Substance: VINCRISTINE
     Indication: T-cell type acute leukaemia
     Dosage: UNK (RECEIVED CIVP REGIMEN)
     Route: 065
  5. DECITABINE [Suspect]
     Active Substance: DECITABINE
     Indication: T-cell type acute leukaemia
     Dosage: UNK (RECEIVED ONE COURSE)
     Route: 065
  6. OMACETAXINE MEPESUCCINATE [Suspect]
     Active Substance: OMACETAXINE MEPESUCCINATE
     Indication: T-cell type acute leukaemia
     Dosage: UNK (RECEIVED ONE COURSE)
     Route: 065
  7. ACLARUBICIN [Suspect]
     Active Substance: ACLARUBICIN
     Indication: T-cell type acute leukaemia
     Dosage: UNK (RECEIVED ONE COURSE)
     Route: 065
  8. CYTARABINE [Suspect]
     Active Substance: CYTARABINE
     Indication: T-cell type acute leukaemia
     Dosage: UNK (RECEIVED ONE COURSE)
     Route: 065
  9. AZACITIDINE [Suspect]
     Active Substance: AZACITIDINE
     Indication: T-cell type acute leukaemia
     Dosage: 75 MILLIGRAM/SQ. METER, QD (ONCE A DAY ON DAY 1-7)
     Route: 065
  10. VENETOCLAX [Suspect]
     Active Substance: VENETOCLAX
     Indication: T-cell type acute leukaemia
     Dosage: 100 MILLIGRAM (ON DAY 1)
     Route: 065
  11. VENETOCLAX [Suspect]
     Active Substance: VENETOCLAX
     Dosage: 200 MILLIGRAM (ON DAY 2)
     Route: 065
  12. VENETOCLAX [Suspect]
     Active Substance: VENETOCLAX
     Dosage: 400 MILLIGRAM (ON DAY 3-7)
     Route: 065
  13. VENETOCLAX [Suspect]
     Active Substance: VENETOCLAX
     Dosage: 100 MILLIGRAM (ON DAY 8-21)
     Route: 065

REACTIONS (2)
  - Death [Fatal]
  - Drug ineffective [Unknown]
